FAERS Safety Report 4519233-9 (Version None)
Quarter: 2004Q4

REPORT INFORMATION
  Report Type: 
  Country: None (occurrence: None)
  Receive Date: 20041206
  Receipt Date: 20040901
  Transmission Date: 20050328
  Serious: Yes (Other)
  Sender: FDA-Public Use
  Company Number: US-BRISTOL-MYERS SQUIBB COMPANY-12688404

PATIENT
  Sex: Female

DRUGS (2)
  1. DIDANOSINE [Suspect]
  2. STAVUDINE [Suspect]

REACTIONS (2)
  - HEPATIC STEATOSIS [None]
  - LACTIC ACIDOSIS [None]
